FAERS Safety Report 8235577-1 (Version None)
Quarter: 2012Q1

REPORT INFORMATION
  Report Type: 
  Country: None (occurrence: None)
  Receive Date: 20120326
  Receipt Date: 20120314
  Transmission Date: 20120608
  Serious: Yes (Hospitalization, Other)
  Sender: FDA-Public Use
  Company Number: US-ELI_LILLY_AND_COMPANY-US201203004843

PATIENT
  Age: 30 Year
  Sex: Female

DRUGS (2)
  1. NORCO [Concomitant]
     Dosage: UNK, UNKNOWN
  2. CYMBALTA [Suspect]
     Indication: DEPRESSION
     Dosage: 30 MG, UNKNOWN

REACTIONS (2)
  - PANCYTOPENIA [None]
  - INFECTION [None]
